FAERS Safety Report 9898952 (Version 1)
Quarter: 2014Q1

REPORT INFORMATION
  Report Type: Spontaneous
  Country: JP (occurrence: JP)
  Receive Date: 20140214
  Receipt Date: 20140214
  Transmission Date: 20141002
  Serious: Yes (Other)
  Sender: FDA-Public Use
  Company Number: JP-SA-2014SA017112

PATIENT
  Age: 60 Year
  Sex: Female

DRUGS (10)
  1. MYSLEE [Suspect]
     Indication: PRODUCT USED FOR UNKNOWN INDICATION
     Route: 048
     Dates: start: 20140131, end: 20140131
  2. ANTIDEPRESSANTS [Concomitant]
     Dates: start: 20140131, end: 20140131
  3. ALL OTHER THERAPEUTIC PRODUCTS [Concomitant]
     Dates: start: 20140131, end: 20140131
  4. OTHER CHEMOTHERAPEUTICS [Concomitant]
     Dates: start: 20140131, end: 20140131
  5. ALL OTHER THERAPEUTIC PRODUCTS [Concomitant]
     Dates: start: 20140131, end: 20140131
  6. ANTIHYPERTENSIVES [Concomitant]
     Dates: start: 20140131, end: 20140131
  7. COUGH AND COLD PREPARATIONS [Concomitant]
     Dates: start: 20140131, end: 20140131
  8. ALL OTHER THERAPEUTIC PRODUCTS [Concomitant]
     Dates: start: 20140131, end: 20140131
  9. DRUGS FOR TREATMENT OF PEPTIC ULCER [Concomitant]
     Indication: PEPTIC ULCER
     Dates: start: 20140131, end: 20140131
  10. ALL OTHER THERAPEUTIC PRODUCTS [Concomitant]
     Dates: start: 20140131, end: 20140131

REACTIONS (4)
  - Arrhythmia [Unknown]
  - Suicide attempt [Unknown]
  - Coma [Unknown]
  - Intentional overdose [Unknown]
